FAERS Safety Report 23356940 (Version 1)
Quarter: 2024Q1

REPORT INFORMATION
  Report Type: Other
  Country: US (occurrence: US)
  Receive Date: 20240102
  Receipt Date: 20240102
  Transmission Date: 20240410
  Serious: Yes (Other)
  Sender: FDA-Public Use
  Company Number: US-Aprecia Pharmaceuticals-APRE20230379

PATIENT
  Age: 64 Year
  Sex: Male

DRUGS (9)
  1. LEVETIRACETAM [Suspect]
     Active Substance: LEVETIRACETAM
     Indication: Seizure prophylaxis
     Dosage: 4,500 MG
     Route: 042
  2. LEVETIRACETAM [Suspect]
     Active Substance: LEVETIRACETAM
     Dosage: 1 G
     Route: 042
  3. VALIUM [Concomitant]
     Active Substance: DIAZEPAM
     Indication: Seizure
     Dosage: 10 MG
     Route: 042
  4. LORAZEPAM [Concomitant]
     Active Substance: LORAZEPAM
     Indication: Sedative therapy
  5. MIDAZOLAM [Concomitant]
     Active Substance: MIDAZOLAM
     Indication: Sedative therapy
  6. VANCOMYCIN [Concomitant]
     Active Substance: VANCOMYCIN
     Indication: Mental status changes
     Route: 042
  7. VANCOMYCIN [Concomitant]
     Active Substance: VANCOMYCIN
     Indication: Pyrexia
  8. dexamethasone_ [Concomitant]
     Indication: Mental status changes
     Route: 042
  9. dexamethasone_ [Concomitant]
     Indication: Pyrexia

REACTIONS (2)
  - Rhabdomyolysis [Recovered/Resolved]
  - Urine output decreased [Recovered/Resolved]
